FAERS Safety Report 17011680 (Version 1)
Quarter: 2019Q4

REPORT INFORMATION
  Report Type: Spontaneous
  Country: FR (occurrence: FR)
  Receive Date: 20191108
  Receipt Date: 20191108
  Transmission Date: 20200122
  Serious: Yes (Hospitalization)
  Sender: FDA-Public Use
  Company Number: FR-ANIPHARMA-2019-FR-000232

PATIENT
  Age: 91 Year
  Sex: Female

DRUGS (9)
  1. FLUCONAZOLE): [Concomitant]
     Dosage: 200 MG DAILY
     Route: 048
     Dates: start: 20191002, end: 20191016
  2. CANDESARTAN CILEXETIL. [Suspect]
     Active Substance: CANDESARTAN CILEXETIL
     Indication: HYPERTENSION
     Dosage: UNKNOWN
     Route: 048
     Dates: end: 20191012
  3. COLCHICINE. [Suspect]
     Active Substance: COLCHICINE
     Dosage: 1 MG DAILY
     Route: 048
     Dates: start: 201909, end: 20191012
  4. FUROSEMIDE (NON-SPECIFIC) [Concomitant]
     Dosage: 40 MG DAILY
  5. RISPERIDONE. [Concomitant]
     Active Substance: RISPERIDONE
     Dosage: .5 MG DAILY
     Route: 048
  6. KARDEGIC [Concomitant]
     Active Substance: ASPIRIN DL-LYSINE
     Dosage: 75 MG DAILY
     Route: 048
  7. FOLIC ACID. [Concomitant]
     Active Substance: FOLIC ACID
     Dosage: 10 MG DAILY
     Route: 048
  8. TAZOCILLINE [Suspect]
     Active Substance: PIPERACILLIN SODIUM\TAZOBACTAM SODIUM
     Dosage: UNKNOWN
     Route: 042
     Dates: start: 201909, end: 20191002
  9. PANTOPRAZOLE [Concomitant]
     Active Substance: PANTOPRAZOLE
     Dosage: 80 MG DAILY
     Route: 048

REACTIONS (2)
  - Acute kidney injury [Recovered/Resolved]
  - Diarrhoea [Recovered/Resolved]
